FAERS Safety Report 15559842 (Version 1)
Quarter: 2018Q4

REPORT INFORMATION
  Report Type: Spontaneous
  Country: US (occurrence: US)
  Receive Date: 20181023
  Receipt Date: 20181023
  Transmission Date: 20190205
  Serious: Yes (Hospitalization)
  Sender: FDA-Public Use
  Company Number: None

PATIENT
  Age: 73 Year
  Sex: Female
  Weight: 57.1 kg

DRUGS (11)
  1. PERCOCET [Suspect]
     Active Substance: ACETAMINOPHEN\OXYCODONE HYDROCHLORIDE
     Dosage: ?          OTHER DOSE:5/325MG;OTHER FREQUENCY:Q6HRS PRN; CHRONIC?
     Route: 048
  2. SYMBICOR [Concomitant]
  3. OCEAN SALINE NASAL SPRAY [Concomitant]
     Active Substance: SODIUM CHLORIDE
  4. PREGABALIN. [Suspect]
     Active Substance: PREGABALIN
     Route: 048
  5. PRILOSEC [Concomitant]
     Active Substance: OMEPRAZOLE MAGNESIUM
  6. SYNTHROID [Concomitant]
     Active Substance: LEVOTHYROXINE SODIUM
  7. LEXAPRO [Concomitant]
     Active Substance: ESCITALOPRAM OXALATE
  8. FE [Concomitant]
     Active Substance: IRON
  9. TRAZODONE [Suspect]
     Active Substance: TRAZODONE HYDROCHLORIDE
     Dosage: ?          OTHER FREQUENCY:NIGHTLY;  CHRONIC?
     Route: 048
  10. ALBUTEROL. [Concomitant]
     Active Substance: ALBUTEROL
  11. ALLEGRA [Concomitant]
     Active Substance: FEXOFENADINE HYDROCHLORIDE

REACTIONS (3)
  - Sedation complication [None]
  - Encephalopathy [None]
  - Hypoxia [None]

NARRATIVE: CASE EVENT DATE: 20180831
